FAERS Safety Report 18362939 (Version 1)
Quarter: 2020Q4

REPORT INFORMATION
  Report Type: Spontaneous
  Country: US (occurrence: US)
  Receive Date: 20201008
  Receipt Date: 20201008
  Transmission Date: 20210114
  Serious: Yes (Other)
  Sender: FDA-Public Use
  Company Number: US-GE HEALTHCARE LIFE SCIENCES-2020CSU005121

PATIENT
  Age: 60 Year
  Sex: Male

DRUGS (3)
  1. VISIPAQUE [Suspect]
     Active Substance: IODIXANOL
     Indication: ANGIOGRAM
     Dosage: 165 ML OVER 60 MIN INTERVAL
     Route: 013
  2. VISIPAQUE [Suspect]
     Active Substance: IODIXANOL
     Indication: TROPONIN INCREASED
  3. VISIPAQUE [Suspect]
     Active Substance: IODIXANOL
     Indication: ACUTE MYOCARDIAL INFARCTION

REACTIONS (2)
  - Acute kidney injury [Unknown]
  - Sialoadenitis [Recovered/Resolved]
